FAERS Safety Report 24680525 (Version 1)
Quarter: 2024Q4

REPORT INFORMATION
  Report Type: Spontaneous
  Country: NL (occurrence: NL)
  Receive Date: 20241129
  Receipt Date: 20241129
  Transmission Date: 20250115
  Serious: Yes (Hospitalization)
  Sender: PFIZER
  Company Number: NL-ROCHE-10000131886

PATIENT
  Age: 55 Year
  Sex: Female

DRUGS (8)
  1. BEVACIZUMAB [Suspect]
     Active Substance: BEVACIZUMAB
     Indication: Carcinoid tumour pulmonary
     Dosage: 1200 MG, 5 CYCLES
     Route: 042
     Dates: start: 20240802
  2. BEVACIZUMAB [Suspect]
     Active Substance: BEVACIZUMAB
     Dosage: UNK, LAST DOSE
     Route: 042
     Dates: start: 20241021
  3. CARBOPLATIN [Suspect]
     Active Substance: CARBOPLATIN
     Indication: Carcinoid tumour pulmonary
     Dosage: 750 MG, 4 CYCLES
     Route: 042
     Dates: start: 20240802
  4. CARBOPLATIN [Suspect]
     Active Substance: CARBOPLATIN
     Dosage: UNK, LAST DOSE
     Route: 042
     Dates: start: 20241004
  5. ATEZOLIZUMAB [Suspect]
     Active Substance: ATEZOLIZUMAB
     Indication: Carcinoid tumour pulmonary
     Dosage: 1200 MG, 5 CYCLES
     Route: 042
     Dates: start: 20240802
  6. ATEZOLIZUMAB [Suspect]
     Active Substance: ATEZOLIZUMAB
     Dosage: UNK, LAST DOSE
     Route: 042
     Dates: start: 20241021
  7. PACLITAXEL [Suspect]
     Active Substance: PACLITAXEL
     Indication: Carcinoid tumour pulmonary
     Dosage: 371 MG, 4 CYCLES
     Route: 042
     Dates: start: 20240802
  8. PACLITAXEL [Suspect]
     Active Substance: PACLITAXEL
     Dosage: UNK, LAST DOSE
     Route: 042
     Dates: start: 20241004

REACTIONS (2)
  - Abdominal pain upper [Not Recovered/Not Resolved]
  - Off label use [Unknown]

NARRATIVE: CASE EVENT DATE: 20240802
